FAERS Safety Report 20631650 (Version 2)
Quarter: 2022Q2

REPORT INFORMATION
  Report Type: Spontaneous
  Country: US (occurrence: US)
  Receive Date: 20220324
  Receipt Date: 20220407
  Transmission Date: 20220721
  Serious: Yes (Life-Threatening, Hospitalization)
  Sender: FDA-Public Use
  Company Number: US-TEVA-2022-US-2018979

PATIENT
  Age: 6 Week
  Sex: Female

DRUGS (7)
  1. AMIODARONE [Suspect]
     Active Substance: AMIODARONE
     Indication: Atrial tachycardia
     Route: 065
  2. ESMOLOL [Suspect]
     Active Substance: ESMOLOL HYDROCHLORIDE
     Indication: Atrial tachycardia
     Route: 050
  3. NADOLOL [Suspect]
     Active Substance: NADOLOL
     Indication: Atrial tachycardia
     Route: 065
  4. DILTIAZEM [Suspect]
     Active Substance: DILTIAZEM
     Indication: Atrial tachycardia
     Route: 065
  5. FLECAINIDE [Suspect]
     Active Substance: FLECAINIDE
     Indication: Atrial tachycardia
     Route: 065
  6. TRAMETINIB [Suspect]
     Active Substance: TRAMETINIB
     Indication: Atrial tachycardia
     Dosage: .025 MG/KG DAILY;
     Route: 065
  7. TRAMETINIB [Suspect]
     Active Substance: TRAMETINIB
     Dosage: .018 MG/KG DAILY;
     Route: 065

REACTIONS (2)
  - Diarrhoea [Unknown]
  - Treatment failure [Unknown]
